FAERS Safety Report 9368727 (Version 1)
Quarter: 2013Q2

REPORT INFORMATION
  Report Type: Spontaneous
  Country: US (occurrence: US)
  Receive Date: 20130626
  Receipt Date: 20130626
  Transmission Date: 20140414
  Serious: Yes (Other)
  Sender: FDA-Public Use
  Company Number: US-ASTRAZENECA-2013SE47709

PATIENT
  Age: 79 Year
  Sex: Male

DRUGS (9)
  1. LISINOPRIL/HCTZ [Suspect]
     Route: 048
  2. TOPROL XL [Suspect]
     Route: 048
  3. CRESTOR [Suspect]
     Route: 048
  4. BRILINTA [Suspect]
     Indication: INTRACARDIAC THROMBUS
     Route: 048
     Dates: start: 2012
  5. BRILINTA [Suspect]
     Indication: MYOCARDIAL INFARCTION
     Route: 048
     Dates: start: 2012
  6. ASPRIN [Concomitant]
     Indication: DRUG THERAPY
  7. ALTACE [Concomitant]
     Dosage: UNK
  8. GLUCOVANCE [Concomitant]
     Dosage: UNK
  9. FLOMAX [Concomitant]
     Dosage: UNK

REACTIONS (2)
  - Transient ischaemic attack [Unknown]
  - Hypertension [Not Recovered/Not Resolved]
